FAERS Safety Report 22002862 (Version 1)
Quarter: 2023Q1

REPORT INFORMATION
  Report Type: Spontaneous
  Country: DE (occurrence: DE)
  Receive Date: 20230217
  Receipt Date: 20230217
  Transmission Date: 20230418
  Serious: Yes (Other)
  Sender: FDA-Public Use
  Company Number: DE-002147023-NVSC2023DE026048

PATIENT
  Age: 30 Year
  Sex: Female

DRUGS (6)
  1. CYCLOPHOSPHAMIDE [Suspect]
     Active Substance: CYCLOPHOSPHAMIDE
     Indication: Breast cancer female
     Dosage: 200 MG/M2, CYCLIC (NEOADJUVANT EC CHEMOTHERAPY, 200 MG/M2, WEEKLY (10 CYCLES) IN REDUCED DOSAGE)
     Route: 065
     Dates: start: 202112
  2. EPIRUBICIN [Suspect]
     Active Substance: EPIRUBICIN
     Indication: Breast cancer female
     Dosage: 30 MG/M2, CYCLIC (NEOADJUVANT EC CHEMOTHERAPY, 30 MG/M2, WEEKLY (10 CYCLES) IN REDUCED DOSAGE)
     Route: 065
     Dates: start: 202112, end: 202204
  3. ASPIRIN [Suspect]
     Active Substance: ASPIRIN
     Indication: Product used for unknown indication
     Dosage: 100 MG, QD
     Route: 065
     Dates: start: 2018
  4. METOPROLOL [Suspect]
     Active Substance: METOPROLOL
     Indication: Product used for unknown indication
     Dosage: 23.75 MG, QD (LOW-DOSE BETA-BLOCKER MEDICATION)
     Route: 065
     Dates: start: 2018
  5. RIVAROXABAN [Suspect]
     Active Substance: RIVAROXABAN
     Indication: Anticoagulant therapy
     Dosage: 15 MG, QD
     Route: 065
     Dates: start: 2018
  6. TINZAPARIN [Suspect]
     Active Substance: TINZAPARIN
     Indication: Anticoagulant therapy
     Dosage: UNK (BODY-WEIGHT-ADJUSTED LOW-MOLECULAR-WEIGHT HEPARIN)
     Route: 065
     Dates: start: 2021

REACTIONS (3)
  - Premature delivery [Unknown]
  - Maternal exposure during pregnancy [Unknown]
  - Contraindicated product administered [Unknown]
